FAERS Safety Report 6721586-8 (Version None)
Quarter: 2010Q2

REPORT INFORMATION
  Report Type: 
  Country: None (occurrence: None)
  Receive Date: 20100512
  Receipt Date: 20091015
  Transmission Date: 20101027
  Serious: Yes (Death)
  Sender: FDA-Public Use
  Company Number: PHHY2009MY66312

PATIENT
  Age: 37 Year
  Sex: Male

DRUGS (2)
  1. GLEEVEC [Suspect]
  2. HYPER-CVAD [Suspect]

REACTIONS (1)
  - NEUTROPENIC SEPSIS [None]
